FAERS Safety Report 10394556 (Version 1)
Quarter: 2014Q3

REPORT INFORMATION
  Report Type: Report from Study
  Country: US (occurrence: US)
  Receive Date: 20140820
  Receipt Date: 20140820
  Transmission Date: 20150326
  Serious: Yes (Hospitalization)
  Sender: FDA-Public Use
  Company Number: US-ROCHE-1451159

PATIENT
  Age: 10 Year
  Sex: Male
  Weight: 37.29 kg

DRUGS (8)
  1. NUTROPIN AQ [Suspect]
     Active Substance: SOMATROPIN
     Indication: HYPOPITUITARISM
     Route: 058
     Dates: start: 20120406
  2. LAMICTAL [Concomitant]
     Active Substance: LAMOTRIGINE
     Dosage: WHILE AWAKE CHEW TAB
     Route: 048
  3. SYNTHROID [Concomitant]
     Active Substance: LEVOTHYROXINE SODIUM
     Dosage: MORNING, 1 TAB
     Route: 048
  4. CORTEF [Concomitant]
     Active Substance: HYDROCORTISONE
     Dosage: 1 TAB
     Route: 048
  5. LUMINALE [Concomitant]
     Active Substance: PHENOBARBITAL
     Route: 048
  6. DIASTAT (DIAZEPAM RECTAL GEL) [Concomitant]
     Route: 054
  7. DDAVP [Concomitant]
     Active Substance: DESMOPRESSIN ACETATE
     Dosage: 1 TAB IN MORNING AND ONE AND A HALF AT BED
     Route: 048
  8. SOLU-CORTEF [Concomitant]
     Active Substance: HYDROCORTISONE SODIUM SUCCINATE
     Route: 030

REACTIONS (2)
  - Drug dose omission [Unknown]
  - Status epilepticus [Unknown]

NARRATIVE: CASE EVENT DATE: 201405
